FAERS Safety Report 4827370-4 (Version None)
Quarter: 2005Q4

REPORT INFORMATION
  Report Type: 
  Country: None (occurrence: None)
  Receive Date: 20051114
  Receipt Date: 20051003
  Transmission Date: 20060501
  Serious: Yes (Death, Hospitalization)
  Sender: FDA-Public Use
  Company Number: US-MERCK-0510USA02479

PATIENT
  Age: 59 Year
  Sex: Male
  Weight: 117 kg

DRUGS (3)
  1. VIOXX [Suspect]
     Indication: ARTHRITIS
     Route: 048
     Dates: start: 20010817, end: 20031009
  2. VIOXX [Suspect]
     Route: 048
     Dates: start: 20010817, end: 20031009
  3. ASPIRIN [Concomitant]
     Route: 065

REACTIONS (2)
  - ARTHRALGIA [None]
  - MYOCARDIAL INFARCTION [None]
